FAERS Safety Report 14088482 (Version 1)
Quarter: 2017Q4

REPORT INFORMATION
  Report Type: Spontaneous
  Country: IE (occurrence: IE)
  Receive Date: 20171013
  Receipt Date: 20171013
  Transmission Date: 20180321
  Serious: Yes (Disabling)
  Sender: FDA-Public Use
  Company Number: IE-TEVA-813548ACC

PATIENT
  Age: 62 Year
  Sex: Male

DRUGS (4)
  1. EXPUTEX 250MG / 5ML ORAL SOLUTION [Concomitant]
     Indication: COUGH
     Dosage: AS REQUIRED
     Route: 048
  2. OTOSPORIN EAR DROPS [Concomitant]
     Indication: FUNGAL INFECTION
  3. CIPROFLOXACIN TEVA [Suspect]
     Active Substance: CIPROFLOXACIN
     Indication: INFLAMMATION
     Dosage: 1000 MILLIGRAM DAILY;
     Route: 048
     Dates: start: 20170913, end: 20170921
  4. LOTRIDERM [Concomitant]
     Active Substance: BETAMETHASONE DIPROPIONATE\CLOTRIMAZOLE
     Indication: ANAL FUNGAL INFECTION
     Route: 048

REACTIONS (20)
  - Gait disturbance [Not Recovered/Not Resolved]
  - Body temperature fluctuation [Not Recovered/Not Resolved]
  - Asthenia [Not Recovered/Not Resolved]
  - Fatigue [Not Recovered/Not Resolved]
  - Mood altered [Not Recovered/Not Resolved]
  - Emotional distress [Not Recovered/Not Resolved]
  - Insomnia [Not Recovered/Not Resolved]
  - Decreased appetite [Not Recovered/Not Resolved]
  - Decreased interest [Not Recovered/Not Resolved]
  - Depressed mood [Not Recovered/Not Resolved]
  - Myalgia [Not Recovered/Not Resolved]
  - Chest discomfort [Not Recovered/Not Resolved]
  - Dyspnoea [Not Recovered/Not Resolved]
  - Physical disability [Not Recovered/Not Resolved]
  - Hypoaesthesia [Not Recovered/Not Resolved]
  - Mobility decreased [Not Recovered/Not Resolved]
  - Feeling of despair [Not Recovered/Not Resolved]
  - Depression [Not Recovered/Not Resolved]
  - Apathy [Not Recovered/Not Resolved]
  - Arthralgia [Not Recovered/Not Resolved]

NARRATIVE: CASE EVENT DATE: 20170915
